FAERS Safety Report 19714829 (Version 2)
Quarter: 2021Q3

REPORT INFORMATION
  Report Type: Spontaneous
  Country: JP (occurrence: JP)
  Receive Date: 20210818
  Receipt Date: 20210820
  Transmission Date: 20211014
  Serious: Yes (Other)
  Sender: FDA-Public Use
  Company Number: JP-BRISTOL-MYERS SQUIBB COMPANY-BMS-2020-088476

PATIENT
  Age: 48 Year
  Sex: Male

DRUGS (2)
  1. OPDIVO [Suspect]
     Active Substance: NIVOLUMAB
     Indication: METASTATIC RENAL CELL CARCINOMA
     Dosage: 240 MILLIGRAM
     Route: 041
     Dates: start: 20190919, end: 20200521
  2. YERVOY [Suspect]
     Active Substance: IPILIMUMAB
     Indication: METASTATIC RENAL CELL CARCINOMA
     Dosage: 60 MILLIGRAM
     Route: 041
     Dates: start: 20190919, end: 20191202

REACTIONS (5)
  - Adrenocorticotropic hormone deficiency [Recovering/Resolving]
  - Malignant neoplasm progression [Unknown]
  - Headache [Unknown]
  - Malaise [Unknown]
  - Autoimmune thyroid disorder [Unknown]

NARRATIVE: CASE EVENT DATE: 20191121
